FAERS Safety Report 4989516-7 (Version None)
Quarter: 2006Q2

REPORT INFORMATION
  Report Type: 
  Country: None (occurrence: None)
  Receive Date: 20060502
  Receipt Date: 20060223
  Transmission Date: 20061013
  Serious: Yes (Hospitalization)
  Sender: FDA-Public Use
  Company Number: US-MERCK-0602USA05630

PATIENT
  Age: 58 Year
  Sex: Female
  Weight: 91 kg

DRUGS (22)
  1. NEURONTIN [Concomitant]
     Route: 065
  2. ADVAIR DISKUS 100/50 [Concomitant]
     Route: 065
  3. ENDOCET [Concomitant]
     Route: 065
  4. GLYBURIDE AND METFORMIN HYDROCHLORIDE [Concomitant]
     Route: 065
  5. LANTUS [Concomitant]
     Route: 065
  6. LISINOPRIL [Concomitant]
     Route: 065
  7. [THERAPY UNSPECIFIED] [Concomitant]
     Route: 065
  8. VIOXX [Suspect]
     Indication: OSTEOARTHRITIS
     Route: 048
     Dates: start: 20000330, end: 20010410
  9. VIOXX [Suspect]
     Route: 048
     Dates: start: 20020121, end: 20030206
  10. VIOXX [Suspect]
     Route: 048
     Dates: start: 20030812, end: 20040329
  11. VIOXX [Suspect]
     Route: 048
     Dates: start: 20040521, end: 20040930
  12. PENTOXIFYLLINE [Concomitant]
     Route: 065
  13. GLUCOPHAGE [Concomitant]
     Route: 065
  14. ALLEGRA [Concomitant]
     Route: 065
  15. DIAZEPAM [Concomitant]
     Route: 065
  16. DIFLUCAN [Concomitant]
     Route: 065
  17. GLUCOTROL XL [Concomitant]
     Route: 065
  18. AMBIEN [Concomitant]
     Route: 065
  19. DEMADEX [Concomitant]
     Route: 065
  20. MONOPRIL [Concomitant]
     Route: 065
  21. HYDROCODONE BITARTRATE [Concomitant]
     Route: 065
  22. TRAZODONE HYDROCHLORIDE [Concomitant]
     Route: 065

REACTIONS (13)
  - ARTERIOSCLEROSIS [None]
  - BLOOD CHOLESTEROL INCREASED [None]
  - BLOOD TRIGLYCERIDES INCREASED [None]
  - CARDIAC FAILURE CONGESTIVE [None]
  - CAROTID ARTERY STENOSIS [None]
  - COAGULOPATHY [None]
  - CORONARY ARTERY DISEASE [None]
  - DYSPEPSIA [None]
  - HAEMORRHAGIC DISORDER [None]
  - HERNIA [None]
  - LUNG NEOPLASM MALIGNANT [None]
  - MYOCARDIAL INFARCTION [None]
  - OEDEMA PERIPHERAL [None]
